FAERS Safety Report 9221621 (Version 1)
Quarter: 2013Q1

REPORT INFORMATION
  Report Type: Spontaneous
  Country: US (occurrence: None)
  Receive Date: 20120831
  Receipt Date: 20120831
  Transmission Date: 20140127
  Serious: No
  Sender: FDA-Public Use
  Company Number: 1000036782

PATIENT
  Age: 84 Year
  Sex: Male

DRUGS (18)
  1. DALIRESP [Suspect]
     Indication: CHRONIC OBSTRUCTIVE PULMONARY DISEASE
     Route: 048
     Dates: start: 20120626
  2. NITROGLYCERIN (GLYCERYL TRINITRATE) (0.2 MILLIGRAM, TRANSDERMAL) (GLYCERYL TRINITRATE) [Concomitant]
  3. ATENOLOL (ATENOLOL) (25 MILLIGRAM, TABLETS) (ATENOLOL) [Concomitant]
  4. PAROXETINE (PAROXETINE) (PAROXETINE) [Concomitant]
  5. ATORVASTATIN (ATORVASTATIN) (40 MILLIGRAM, TABLETS) (ATORVASTATIN) [Concomitant]
  6. FOSINOPRIL (FOSINOPRIL) (FOSINOPRIL) [Concomitant]
  7. ALBUTEROL (ALBUTEROL) (ALBUTEROL) [Concomitant]
  8. IPRATROPIUM/ALBUTEROL (COMBIVENT) (COMBIVENT) [Concomitant]
  9. FLOMAX (TAMSULOSIN) (TAMULOSIN) [Concomitant]
  10. MOMETASONE FUROATE (MOMETASONE FUROATE) (220 MICROGRAM) (MOMETASONE FUROATE) [Concomitant]
  11. FORADIL (FORMOTEROL FUMARATE) (12 MICROGRAM) (FORMOTEROL FUMARATE) [Concomitant]
  12. SINGULAIR [Concomitant]
  13. ALENDRONATE (ALENDRONATE SODIUM) (ALENDRONATE SODIUM) [Concomitant]
  14. VITAMIN-D (VITAMIN-D) (VITAMIN-D) [Concomitant]
  15. MVI (MVI) (MVI) [Concomitant]
  16. CALCIUM (CALCIUM) (CALCIUM) [Concomitant]
  17. VITAMIN-C (ASCORBIC ACID) (ASCORBIC ACID) [Concomitant]
  18. ASPIRIN (ACETYLSALICYLIC ACID) (ACETYLSALICYLIC ACID) [Concomitant]

REACTIONS (3)
  - Nasal dryness [None]
  - Pollakiuria [None]
  - Rhinorrhoea [None]
